FAERS Safety Report 17450845 (Version 1)
Quarter: 2020Q1

REPORT INFORMATION
  Report Type: Spontaneous
  Country: US (occurrence: US)
  Receive Date: 20200224
  Receipt Date: 20200224
  Transmission Date: 20200409
  Serious: No
  Sender: FDA-Public Use
  Company Number: US-VERTEX PHARMACEUTICALS-2020-003285

PATIENT
  Sex: Male
  Weight: 78 kg

DRUGS (2)
  1. TRIKAFTA [Suspect]
     Active Substance: ELEXACAFTOR\IVACAFTOR\TEZACAFTOR
     Indication: CYSTIC FIBROSIS
     Dosage: UNK
     Route: 048
  2. ACYCLOVIR [ACICLOVIR] [Suspect]
     Active Substance: ACYCLOVIR
     Indication: RASH
     Dosage: UNK
     Route: 065
     Dates: start: 20200210

REACTIONS (3)
  - Swollen tongue [Not Recovered/Not Resolved]
  - Rash papular [Unknown]
  - Gingival pain [Not Recovered/Not Resolved]
